FAERS Safety Report 4859934-6 (Version None)
Quarter: 2005Q4

REPORT INFORMATION
  Report Type: 
  Country: None (occurrence: None)
  Receive Date: 20051219
  Receipt Date: 20050916
  Transmission Date: 20060501
  Serious: Yes (Hospitalization)
  Sender: FDA-Public Use
  Company Number: 2005CG01541

PATIENT
  Age: 66 Year
  Sex: Female

DRUGS (5)
  1. ARIMIDEX [Suspect]
     Indication: BREAST CANCER
     Route: 048
     Dates: start: 20050501
  2. SPAGULAX [Suspect]
     Route: 048
  3. LEVOTHYROXINE SODIUM [Suspect]
     Route: 048
     Dates: start: 20031201
  4. DI-ANTALVIC [Suspect]
     Route: 048
  5. LEXOMIL [Suspect]
     Route: 048

REACTIONS (2)
  - DERMATITIS BULLOUS [None]
  - PORPHYRIA NON-ACUTE [None]
